FAERS Safety Report 9503658 (Version 1)
Quarter: 2013Q3

REPORT INFORMATION
  Report Type: Spontaneous
  Country: GB (occurrence: GB)
  Receive Date: 20130906
  Receipt Date: 20130906
  Transmission Date: 20140515
  Serious: Yes (Hospitalization)
  Sender: FDA-Public Use
  Company Number: PHHY2013GB094646

PATIENT
  Age: 73 Year
  Sex: Female

DRUGS (5)
  1. INDAPAMIDE [Suspect]
     Indication: HYPERTENSION
     Dosage: 2.5 MG, UNK
     Route: 048
     Dates: start: 20130806, end: 20130808
  2. ESLICARBAZEPINE [Suspect]
     Indication: EPILEPSY
     Dosage: 1200 MG (400MG IN THE MORNING AND 800MG AT NIGHT (PREVIOUSLY 800MG DAILY)
     Route: 048
     Dates: start: 20130601
  3. ESLICARBAZEPINE [Suspect]
     Dosage: 800 MG (INCREASED TO 400MG IN THE MORNING AND 800MG AT NIGHT)
     Route: 048
  4. RAMIPRIL [Concomitant]
     Indication: HYPERTENSION
     Dosage: 5 MG (RECENTLY INCREASED TO 5MG DAILY)
  5. ASPIRIN [Concomitant]

REACTIONS (6)
  - Anxiety [Unknown]
  - Malaise [Unknown]
  - Feeling abnormal [Unknown]
  - Hyponatraemia [Recovered/Resolved]
  - Headache [Unknown]
  - Nausea [Unknown]
